FAERS Safety Report 7327989-5 (Version None)
Quarter: 2011Q1

REPORT INFORMATION
  Report Type: 
  Country: None (occurrence: None)
  Receive Date: 20110225
  Receipt Date: 20110225
  Transmission Date: 20110831
  Serious: No
  Sender: FDA-Public Use
  Company Number: None

PATIENT
  Sex: Male
  Weight: 13.6079 kg

DRUGS (1)
  1. AMOXICILLIN [Suspect]
     Indication: EAR INFECTION
     Dosage: 1.5 TSP 2X/DAY ORAL
     Route: 048
     Dates: start: 20110217

REACTIONS (1)
  - URTICARIA [None]
